FAERS Safety Report 7727792-8 (Version None)
Quarter: 2011Q3

REPORT INFORMATION
  Report Type: 
  Country: None (occurrence: None)
  Receive Date: 20110905
  Receipt Date: 20110826
  Transmission Date: 20111222
  Serious: Yes (Hospitalization)
  Sender: FDA-Public Use
  Company Number: US-BRISTOL-MYERS SQUIBB COMPANY-16008971

PATIENT
  Age: 64 Year
  Sex: Male
  Weight: 82 kg

DRUGS (17)
  1. PYRIDOXINE HCL [Concomitant]
  2. KAPIDEX [Concomitant]
  3. FLORINEF TABS [Concomitant]
  4. PLAVIX [Concomitant]
  5. PACLITAXEL [Suspect]
     Indication: NON-SMALL CELL LUNG CANCER
     Dosage: LAST INFUSION ON 20OCT10.
     Route: 065
     Dates: start: 20100816
  6. POTASSIUM CHLORIDE [Concomitant]
  7. CARVEDILOL [Concomitant]
  8. DETROL [Concomitant]
  9. CETUXIMAB [Suspect]
     Indication: NON-SMALL CELL LUNG CANCER
     Dosage: VIAL. ON 16AUG10-27OCT10:73 DAYS.INTR 27OCT10.LAST INFUSION ON 20OCT10.AGAIN REST ON 03NOV10-UNK.
     Route: 065
     Dates: start: 20100816
  10. CARBOPLATIN [Suspect]
     Indication: NON-SMALL CELL LUNG CANCER
     Dosage: LAST INFUSION ON 20OCT2010.
     Route: 065
     Dates: start: 20100816
  11. GABAPENTIN [Concomitant]
  12. MAGNESIUM [Concomitant]
  13. VITAMIN B-12 [Concomitant]
  14. ALPHA-LIPOIC ACID [Concomitant]
  15. SIMVASTATIN [Concomitant]
  16. JANUMET [Concomitant]
  17. SYMBICORT [Concomitant]

REACTIONS (1)
  - MUSCULAR WEAKNESS [None]
